FAERS Safety Report 8055923-1 (Version None)
Quarter: 2011Q4

REPORT INFORMATION
  Report Type: 
  Country: None (occurrence: None)
  Receive Date: 20111216
  Receipt Date: 20110325
  Transmission Date: 20120403
  Serious: Yes (Other)
  Sender: FDA-Public Use
  Company Number: 273235USA

PATIENT
  Age: 22 Year
  Sex: Female
  Weight: 48.0813 kg

DRUGS (1)
  1. PARAGARD T 380A [Suspect]
     Indication: CONTRACEPTION
     Dosage: I.U.
     Route: 015
     Dates: start: 20110209, end: 20110322

REACTIONS (1)
  - UTERINE RUPTURE [None]
